FAERS Safety Report 18700324 (Version 1)
Quarter: 2021Q1

REPORT INFORMATION
  Report Type: Spontaneous
  Country: US (occurrence: US)
  Receive Date: 20210104
  Receipt Date: 20210104
  Transmission Date: 20210419
  Serious: No
  Sender: FDA-Public Use
  Company Number: None

PATIENT
  Age: 38 Year
  Sex: Male
  Weight: 156.5 kg

DRUGS (3)
  1. DIPHENDYDRAMINE [Concomitant]
     Dates: start: 20201229, end: 20201229
  2. BAMLANIVIMAB. [Suspect]
     Active Substance: BAMLANIVIMAB
     Indication: COVID-19
     Dosage: ?          OTHER FREQUENCY:ONCE;?
     Route: 041
     Dates: start: 20201229, end: 20201229
  3. METHYLPREDNISOLONE. [Concomitant]
     Active Substance: METHYLPREDNISOLONE
     Dates: start: 20201229, end: 20201229

REACTIONS (4)
  - Dyspnoea [None]
  - Infusion related reaction [None]
  - Wheezing [None]
  - Headache [None]

NARRATIVE: CASE EVENT DATE: 20201229
